FAERS Safety Report 14666500 (Version 2)
Quarter: 2018Q4

REPORT INFORMATION
  Report Type: Spontaneous
  Country: AU (occurrence: AU)
  Receive Date: 20180321
  Receipt Date: 20181130
  Transmission Date: 20190204
  Serious: Yes (Other)
  Sender: FDA-Public Use
  Company Number: AU-009507513-1803AUS008821

PATIENT

DRUGS (1)
  1. PEMBROLIZUMAB. [Suspect]
     Active Substance: PEMBROLIZUMAB
     Indication: MALIGNANT MELANOMA
     Dosage: UNK

REACTIONS (6)
  - Pneumonitis [Recovering/Resolving]
  - Immune-mediated adverse reaction [Recovering/Resolving]
  - Therapy partial responder [Unknown]
  - Polymyalgia rheumatica [Recovering/Resolving]
  - Polyarthritis [Recovering/Resolving]
  - Malignant neoplasm progression [Unknown]
